FAERS Safety Report 19479637 (Version 1)
Quarter: 2021Q2

REPORT INFORMATION
  Report Type: Spontaneous
  Country: IR (occurrence: IR)
  Receive Date: 20210630
  Receipt Date: 20210630
  Transmission Date: 20210717
  Serious: Yes (Other)
  Sender: FDA-Public Use
  Company Number: IR-SA-2021SA209982

PATIENT
  Age: 40 Year
  Sex: Male
  Weight: 85 kg

DRUGS (1)
  1. OMNIC [Suspect]
     Active Substance: TAMSULOSIN HYDROCHLORIDE
     Indication: BENIGN PROSTATIC HYPERPLASIA
     Dosage: UNK UNK, QD
     Route: 048
     Dates: start: 20210614, end: 20210617

REACTIONS (2)
  - Flatulence [Recovering/Resolving]
  - Ejaculation disorder [Unknown]

NARRATIVE: CASE EVENT DATE: 20210616
